FAERS Safety Report 9703312 (Version 2)
Quarter: 2014Q1

REPORT INFORMATION
  Report Type: Spontaneous
  Country: NO (occurrence: NO)
  Receive Date: 20131122
  Receipt Date: 20140131
  Transmission Date: 20141002
  Serious: Yes (Other)
  Sender: FDA-Public Use
  Company Number: NO-009507513-1311NOR009025

PATIENT
  Sex: Female

DRUGS (1)
  1. REMERON [Suspect]
     Dosage: UNKNOWN
     Route: 065

REACTIONS (2)
  - Drug abuse [Recovered/Resolved]
  - Sedation [Recovered/Resolved]
